FAERS Safety Report 20692723 (Version 1)
Quarter: 2022Q2

REPORT INFORMATION
  Report Type: Spontaneous
  Country: US (occurrence: US)
  Receive Date: 20220409
  Receipt Date: 20220409
  Transmission Date: 20220721
  Serious: Yes (Life-Threatening, Hospitalization)
  Sender: FDA-Public Use
  Company Number: US-AMGEN-USASP2022057913

PATIENT
  Age: 64 Year
  Sex: Female

DRUGS (12)
  1. BEVACIZUMAB [Suspect]
     Active Substance: BEVACIZUMAB
     Indication: Hereditary haemorrhagic telangiectasia
     Dosage: UNK
     Route: 065
  2. BEVACIZUMAB [Suspect]
     Active Substance: BEVACIZUMAB
     Indication: Hereditary haemorrhagic telangiectasia
  3. DANAZOL [Suspect]
     Active Substance: DANAZOL
     Indication: Hereditary haemorrhagic telangiectasia
     Route: 065
  4. DOXYCYCLINE [Suspect]
     Active Substance: DOXYCYCLINE
     Indication: Hereditary haemorrhagic telangiectasia
     Route: 065
  5. AMINOCAPROIC ACID [Suspect]
     Active Substance: AMINOCAPROIC ACID
     Indication: Hereditary haemorrhagic telangiectasia
     Route: 065
  6. THALIDOMIDE [Concomitant]
     Active Substance: THALIDOMIDE
     Dosage: 50 MILLIGRAM
  7. IRON [Concomitant]
     Active Substance: IRON
  8. ATIVAN [Concomitant]
     Active Substance: LORAZEPAM
  9. PROPOFOL [Concomitant]
     Active Substance: PROPOFOL
  10. LEVETIRACETAM [Concomitant]
     Active Substance: LEVETIRACETAM
  11. RIFAXIMIN [Concomitant]
     Active Substance: RIFAXIMIN
  12. LACTULOSE [Concomitant]
     Active Substance: LACTULOSE

REACTIONS (28)
  - Brain oedema [Recovered/Resolved]
  - Bradycardia [Unknown]
  - Disseminated intravascular coagulation [Recovering/Resolving]
  - Hyporesponsive to stimuli [Unknown]
  - Clonus [Unknown]
  - Brain injury [Unknown]
  - Ammonia increased [Recovered/Resolved]
  - Tachypnoea [Unknown]
  - Seizure [Unknown]
  - Brain herniation [Unknown]
  - Haematemesis [Unknown]
  - Extensor plantar response [Unknown]
  - Gastric haemorrhage [Unknown]
  - Conjunctival disorder [Unknown]
  - Tachycardia [Unknown]
  - Gastric ulcer [Unknown]
  - Abdominal distension [Unknown]
  - Liver disorder [Unknown]
  - Haematochezia [Unknown]
  - Tenderness [Unknown]
  - Vascular malformation [Unknown]
  - Hypotension [Unknown]
  - Pallor [Unknown]
  - Lethargy [Unknown]
  - Hypertension [Unknown]
  - Eye disorder [Unknown]
  - Melaena [Unknown]
  - Off label use [Unknown]
